FAERS Safety Report 21561839 (Version 1)
Quarter: 2022Q4

REPORT INFORMATION
  Report Type: Spontaneous
  Country: US (occurrence: None)
  Receive Date: 20221104
  Receipt Date: 20221104
  Transmission Date: 20230113
  Serious: Yes (unspecified)
  Sender: FDA-Public Use
  Company Number: None

PATIENT
  Age: 76 Year
  Sex: Female
  Weight: 65.7 kg

DRUGS (2)
  1. VENOFER [Suspect]
     Active Substance: IRON SUCROSE
     Indication: Anaemia
     Dosage: OTHER FREQUENCY : OVER 2 WEEKS;?
     Route: 041
     Dates: start: 20221028, end: 20221028
  2. SODIUM CHLORIDE [Concomitant]
     Active Substance: SODIUM CHLORIDE
     Dates: start: 20221028, end: 20221028

REACTIONS (2)
  - Wheezing [None]
  - Infusion related reaction [None]

NARRATIVE: CASE EVENT DATE: 20221028
